FAERS Safety Report 5311990-7 (Version None)
Quarter: 2007Q2

REPORT INFORMATION
  Report Type: 
  Country: None (occurrence: None)
  Receive Date: 20070430
  Receipt Date: 20060424
  Transmission Date: 20071010
  Serious: No
  Sender: FDA-Public Use
  Company Number: 2006UW07309

PATIENT
  Age: 65 Year
  Sex: Female
  Weight: 45.4 kg

DRUGS (5)
  1. NEXIUM [Suspect]
     Indication: GASTROOESOPHAGEAL REFLUX DISEASE
     Route: 048
  2. NEXIUM [Suspect]
     Route: 048
  3. CARAFATE [Suspect]
     Indication: GASTROOESOPHAGEAL REFLUX DISEASE
  4. VALIUM [Concomitant]
  5. VITAMINS [Concomitant]

REACTIONS (9)
  - ABDOMINAL PAIN [None]
  - ABNORMAL DREAMS [None]
  - ANXIETY [None]
  - DEPRESSION [None]
  - DRUG INEFFECTIVE [None]
  - INSOMNIA [None]
  - MUSCLE SPASMS [None]
  - NAUSEA [None]
  - PARAESTHESIA ORAL [None]
